FAERS Safety Report 8808990 (Version 1)
Quarter: 2012Q4

REPORT INFORMATION
  Report Type: Spontaneous
  Country: CZ (occurrence: None)
  Receive Date: 20120920
  Receipt Date: 20120920
  Transmission Date: 20130627
  Serious: Yes (Hospitalization)
  Sender: FDA-Public Use
  Company Number: B0788607A

PATIENT
  Age: 42 Year
  Sex: Female

DRUGS (12)
  1. DOCETAXEL [Suspect]
     Indication: BREAST CANCER
     Dosage: 100 mg/m2 / unk / intravenous infusion
     Route: 041
  2. PACLITAXEL [Suspect]
     Dosage: Unk / Unk / Intravenous infusion
     Route: 041
  3. CYCLOPHOSPHAMIDE [Suspect]
  4. CORTICOSTEROIDS [Suspect]
  5. BISULEPIN HYDROCHLORIDE [Suspect]
  6. DEXAMETHASONE [Suspect]
  7. RANITIDINE HYDROCHLORIDE [Suspect]
  8. DOXORUBICIN HYDROCHLORIDE [Concomitant]
  9. GOSERELIN [Concomitant]
  10. TAMOXIFEN [Concomitant]
  11. RADIOTHERAPY [Concomitant]
  12. ONDANSETRON HYDROCHLORIDE [Concomitant]

REACTIONS (6)
  - Hallucinations, mixed [None]
  - Mental disorder [None]
  - Delirium [None]
  - Anxiety [None]
  - Disturbance in attention [None]
  - Headache [None]
